FAERS Safety Report 6882035-2 (Version None)
Quarter: 2010Q2

REPORT INFORMATION
  Report Type: 
  Country: None (occurrence: None)
  Receive Date: 20100630
  Receipt Date: 20090225
  Transmission Date: 20101027
  Serious: No
  Sender: FDA-Public Use
  Company Number: 2009-01043

PATIENT
  Age: 43 Year
  Sex: Male
  Weight: 70.3075 kg

DRUGS (3)
  1. ZICAM COLD REMEDY NASAL GEL [Suspect]
     Dosage: 2 DOSES X 1 DAY
     Dates: start: 20090220, end: 20090221
  2. MULTI-VITAMIN [Concomitant]
  3. FISH OIL [Concomitant]

REACTIONS (2)
  - AGEUSIA [None]
  - ANOSMIA [None]
